FAERS Safety Report 20864723 (Version 1)
Quarter: 2022Q2

REPORT INFORMATION
  Report Type: Spontaneous
  Country: PL (occurrence: PL)
  Receive Date: 20220524
  Receipt Date: 20220524
  Transmission Date: 20220721
  Serious: Yes (Hospitalization, Other)
  Sender: FDA-Public Use
  Company Number: PL-BoehringerIngelheim-2022-BI-171820

PATIENT
  Age: 55 Year
  Sex: Male

DRUGS (4)
  1. TELMISARTAN [Suspect]
     Active Substance: TELMISARTAN
     Indication: Hypertension
  2. INDAPAMIDE [Concomitant]
     Active Substance: INDAPAMIDE
     Indication: Hypertension
  3. HYDROCHLOROTHIAZIDE [Concomitant]
     Active Substance: HYDROCHLOROTHIAZIDE
     Indication: Product used for unknown indication
  4. L-THYROXINE AKRI [Concomitant]
     Indication: Product used for unknown indication

REACTIONS (7)
  - Thyroidectomy [Unknown]
  - Primary hypoparathyroidism [Unknown]
  - Blood parathyroid hormone decreased [Unknown]
  - Hypomagnesaemia [Recovered/Resolved]
  - Hypercalciuria [Recovered/Resolved]
  - Hypophosphataemia [Recovered/Resolved]
  - Hypocalcaemia [Recovered/Resolved]
